FAERS Safety Report 9203186 (Version 1)
Quarter: 2013Q1

REPORT INFORMATION
  Report Type: Spontaneous
  Country: FR (occurrence: None)
  Receive Date: 20130328
  Receipt Date: 20130328
  Transmission Date: 20140127
  Serious: Yes (Hospitalization, Other)
  Sender: FDA-Public Use
  Company Number: 2013-04943

PATIENT
  Age: 14 Year
  Sex: Female

DRUGS (1)
  1. SALBUTAMOL (SALBUTAMOL) [Suspect]
     Indication: INTENTIONAL DRUG MISUSE
     Dosage: 12 PUFFS, SINGLE, CUTANEOUS
     Route: 003

REACTIONS (6)
  - Application site burn [None]
  - Intentional drug misuse [None]
  - Incorrect route of drug administration [None]
  - Alcohol poisoning [None]
  - Burns first degree [None]
  - Family stress [None]
